FAERS Safety Report 4388705-2 (Version None)
Quarter: 2004Q3

REPORT INFORMATION
  Report Type: 
  Country: None (occurrence: None)
  Receive Date: 20040701
  Receipt Date: 20040521
  Transmission Date: 20050211
  Serious: Yes (Life-Threatening)
  Sender: FDA-Public Use
  Company Number: PHBS2004JP06735

PATIENT
  Age: 64 Year
  Sex: Male

DRUGS (2)
  1. LAMISIL [Suspect]
     Indication: NAIL TINEA
     Dosage: 125 MG, QD
     Route: 048
     Dates: start: 20030908, end: 20031001
  2. LAMISIL [Concomitant]
     Dosage: 20 ML/D
     Route: 061
     Dates: start: 20030908

REACTIONS (5)
  - BLOOD PRESSURE INCREASED [None]
  - EPISTAXIS [None]
  - HEPATIC NEOPLASM MALIGNANT NON-RESECTABLE [None]
  - MALAISE [None]
  - PYREXIA [None]
